FAERS Safety Report 5019683-0 (Version None)
Quarter: 2006Q2

REPORT INFORMATION
  Report Type: 
  Country: None (occurrence: None)
  Receive Date: 20060601
  Receipt Date: 20060519
  Transmission Date: 20061013
  Serious: Yes (Hospitalization, Other)
  Sender: FDA-Public Use
  Company Number: 2006006045

PATIENT
  Age: 41 Year
  Sex: Male
  Weight: 131 kg

DRUGS (5)
  1. SILDENAFIL CITRATE [Suspect]
     Indication: PULMONARY HYPERTENSION
     Dosage: 240 MG (80 MG, 3 IN 1 D), ORAL
     Route: 048
     Dates: start: 20040629
  2. FLOLAN [Suspect]
     Indication: ILL-DEFINED DISORDER
     Dosage: ORAL
     Route: 048
     Dates: start: 20030408
  3. LASIX [Concomitant]
  4. NEXIUM [Concomitant]
  5. ALDACTONE [Concomitant]

REACTIONS (19)
  - CHEST PAIN [None]
  - CONDITION AGGRAVATED [None]
  - DRUG INTERACTION [None]
  - DYSPHASIA [None]
  - DYSPNOEA [None]
  - FLUSHING [None]
  - HAEMATURIA [None]
  - HEADACHE [None]
  - HYPERKALAEMIA [None]
  - INCORRECT DOSE ADMINISTERED [None]
  - ODYNOPHAGIA [None]
  - OEDEMA PERIPHERAL [None]
  - PAIN IN JAW [None]
  - PALPITATIONS [None]
  - REFUSAL OF TREATMENT BY PATIENT [None]
  - RENAL IMPAIRMENT [None]
  - TONSILLAR DISORDER [None]
  - TREATMENT NONCOMPLIANCE [None]
  - VENTRICULAR HYPOKINESIA [None]
